FAERS Safety Report 5464358-7 (Version None)
Quarter: 2007Q3

REPORT INFORMATION
  Report Type: 
  Country: None (occurrence: None)
  Receive Date: 20070921
  Receipt Date: 20070911
  Transmission Date: 20080115
  Serious: Yes (Hospitalization)
  Sender: FDA-Public Use
  Company Number: JP-JNJFOC-20070801084

PATIENT
  Sex: Female
  Weight: 67 kg

DRUGS (17)
  1. REMICADE [Suspect]
     Dosage: 9 INFUSIONS ON UNKNOWN DATES
     Route: 042
  2. REMICADE [Suspect]
     Dosage: 9 INFUSIONS ON UNKNOWN DATES
     Route: 042
  3. REMICADE [Suspect]
     Dosage: 9 INFUSIONS ON UNKNOWN DATES
     Route: 042
  4. REMICADE [Suspect]
     Dosage: 9 INFUSIONS ON UNKNOWN DATES
     Route: 042
  5. REMICADE [Suspect]
     Dosage: 9 INFUSIONS ON UNKNOWN DATES
     Route: 042
  6. REMICADE [Suspect]
     Dosage: 9 INFUSIONS ON UNKNOWN DATES
     Route: 042
  7. REMICADE [Suspect]
     Dosage: 9 INFUSIONS ON UNKNOWN DATES
     Route: 042
  8. REMICADE [Suspect]
     Dosage: 9 INFUSIONS ON UNKNOWN DATES
     Route: 042
  9. REMICADE [Suspect]
     Indication: RHEUMATOID ARTHRITIS
     Dosage: 9 INFUSIONS ON UNKNOWN DATES
     Route: 042
  10. MOBIC [Suspect]
     Indication: RHEUMATOID ARTHRITIS
     Route: 048
  11. BREDININ [Suspect]
     Indication: RHEUMATOID ARTHRITIS
     Route: 048
  12. RIMATIL [Suspect]
     Indication: RHEUMATOID ARTHRITIS
     Route: 048
  13. ACTONEL [Suspect]
     Indication: OSTEOPOROSIS
     Route: 048
  14. LANSOPRAZOLE [Suspect]
     Indication: REFLUX OESOPHAGITIS
     Route: 048
  15. CYTOTEC [Suspect]
     Indication: GASTRITIS
     Dosage: 600RG
     Route: 048
  16. RHEUMATREX [Suspect]
     Indication: RHEUMATOID ARTHRITIS
     Route: 048
  17. ISONIAZID [Concomitant]
     Indication: ANTIBIOTIC PROPHYLAXIS
     Route: 048

REACTIONS (8)
  - BLOOD ALKALINE PHOSPHATASE INCREASED [None]
  - CONDITION AGGRAVATED [None]
  - DRUG INEFFECTIVE [None]
  - INFECTION [None]
  - LIVER DISORDER [None]
  - NO THERAPEUTIC RESPONSE [None]
  - SEPSIS [None]
  - TUBERCULOSIS [None]
